FAERS Safety Report 6195620-0 (Version None)
Quarter: 2009Q2

REPORT INFORMATION
  Report Type: 
  Country: None (occurrence: None)
  Receive Date: 20090519
  Receipt Date: 20090515
  Transmission Date: 20091009
  Serious: Yes (Life-Threatening)
  Sender: FDA-Public Use
  Company Number: PHHO2009CA06233

PATIENT
  Sex: Male
  Weight: 103.5 kg

DRUGS (2)
  1. CERTICAN [Suspect]
     Indication: GLIOBLASTOMA MULTIFORME
     Dosage: 10 MG / DAY X 28
     Route: 048
     Dates: start: 20090415, end: 20090511
  2. TEMOZOLOMIDE [Suspect]
     Indication: GLIOBLASTOMA MULTIFORME
     Dosage: 315 MG / DAY X 5
     Route: 048
     Dates: start: 20090415, end: 20090419

REACTIONS (6)
  - DEEP VEIN THROMBOSIS [None]
  - DYSPNOEA EXERTIONAL [None]
  - INTERNATIONAL NORMALISED RATIO DECREASED [None]
  - OEDEMA PERIPHERAL [None]
  - PROTHROMBIN TIME SHORTENED [None]
  - PULMONARY EMBOLISM [None]
